FAERS Safety Report 10074666 (Version 2)
Quarter: 2015Q1

REPORT INFORMATION
  Report Type: Report from Study
  Country: US (occurrence: US)
  Receive Date: 20140414
  Receipt Date: 20150224
  Transmission Date: 20150720
  Serious: Yes (Hospitalization, Other)
  Sender: FDA-Public Use
  Company Number: US-AMGEN INC.-USASP2014026119

PATIENT
  Age: 59 Year
  Sex: Male

DRUGS (3)
  1. ENBREL [Suspect]
     Active Substance: ETANERCEPT
     Indication: RHEUMATOID ARTHRITIS
     Dosage: 50MG EVERY 2 TO 3 WEEKS
     Route: 065
     Dates: start: 200301, end: 201409
  2. ENBREL [Suspect]
     Active Substance: ETANERCEPT
     Indication: ANKYLOSING SPONDYLITIS
     Dosage: UNK
     Route: 065
  3. VOLTAREN [Concomitant]
     Active Substance: DICLOFENAC SODIUM
     Dosage: 50 MG, TID

REACTIONS (17)
  - Large intestine perforation [Recovered/Resolved]
  - Fistula [Recovered/Resolved]
  - Surgery [Recovered/Resolved]
  - Sepsis [Recovered/Resolved]
  - Bone pain [Not Recovered/Not Resolved]
  - Bladder neoplasm [Not Recovered/Not Resolved]
  - Rib fracture [Recovered/Resolved]
  - Scapula fracture [Recovered/Resolved]
  - Anaemia [Recovered/Resolved]
  - Appendicitis perforated [Recovered/Resolved]
  - Blood calcium decreased [Recovered/Resolved]
  - Road traffic accident [Recovered/Resolved]
  - Prostate cancer [Not Recovered/Not Resolved]
  - Cervical vertebral fracture [Recovered/Resolved]
  - Clavicle fracture [Recovered/Resolved]
  - Cellulitis [Recovered/Resolved]
  - Blood magnesium decreased [Recovered/Resolved]

NARRATIVE: CASE EVENT DATE: 201407
